FAERS Safety Report 16855977 (Version 1)
Quarter: 2019Q3

REPORT INFORMATION
  Report Type: Report from Study
  Country: ZW (occurrence: ZW)
  Receive Date: 20190926
  Receipt Date: 20190926
  Transmission Date: 20191005
  Serious: Yes (Other)
  Sender: FDA-Public Use
  Company Number: ZW-MYLANLABS-2019M1088638

PATIENT

DRUGS (6)
  1. SULPHAMETHOXAZOLE/TRIMETHOPRIM [Suspect]
     Active Substance: SULFAMETHOXAZOLE\TRIMETHOPRIM
     Indication: HIV INFECTION
     Route: 065
  2. ISONIAZID W/RIFAMPICIN [Interacting]
     Active Substance: ISONIAZID\RIFAMPIN
     Indication: HIV INFECTION
     Route: 065
  3. SULPHAMETHOXAZOLE/TRIMETHOPRIM [Suspect]
     Active Substance: SULFAMETHOXAZOLE\TRIMETHOPRIM
     Indication: TUBERCULOSIS
  4. ISONIAZID W/RIFAMPICIN [Interacting]
     Active Substance: ISONIAZID\RIFAMPIN
     Indication: TUBERCULOSIS
  5. EFAVIRENZ. [Interacting]
     Active Substance: EFAVIRENZ
     Indication: TUBERCULOSIS
  6. EFAVIRENZ. [Suspect]
     Active Substance: EFAVIRENZ
     Indication: HIV INFECTION
     Dosage: UNK, QD
     Route: 065

REACTIONS (3)
  - Drug level increased [Recovered/Resolved]
  - Drug interaction [Recovered/Resolved]
  - Transaminases increased [Recovered/Resolved]
